FAERS Safety Report 23913747 (Version 1)
Quarter: 2024Q2

REPORT INFORMATION
  Report Type: Spontaneous
  Country: ZA (occurrence: None)
  Receive Date: 20240529
  Receipt Date: 20240529
  Transmission Date: 20240716
  Serious: Yes (Other)
  Sender: FDA-Public Use
  Company Number: 2024A120037

PATIENT
  Age: 14610 Day
  Sex: Female

DRUGS (7)
  1. BUDESONIDE\FORMOTEROL [Suspect]
     Active Substance: BUDESONIDE\FORMOTEROL
     Indication: Asthma
     Dosage: 160/4.5 MCG, UNKNOWN UNKNOWN
     Route: 055
  2. DYNAPAYNE [Concomitant]
     Indication: Pain
  3. BE-TABS FOLIC-ACID [Concomitant]
     Indication: Coronary artery disease
  4. NUR-ISTERATE [Concomitant]
     Indication: Contraception
  5. GARDASIL 9 [Concomitant]
     Active Substance: HUMAN PAPILLOMAVIRUS TYPE 11 L1 CAPSID PROTEIN ANTIGEN\HUMAN PAPILLOMAVIRUS TYPE 16 L1 CAPSID PROTEI
  6. FERRIMED [Concomitant]
  7. BENYLIN FOUR FLU [Concomitant]

REACTIONS (1)
  - Uterine leiomyoma [Unknown]
